FAERS Safety Report 7388083 (Version 18)
Quarter: 2014Q1

REPORT INFORMATION
  Report Type: Spontaneous
  Country: US (occurrence: US)
  Receive Date: 20100514
  Receipt Date: 20140207
  Transmission Date: 20141002
  Serious: Yes (Hospitalization, Other)
  Sender: FDA-Public Use
  Company Number: PHEH2010US03432

PATIENT
  Sex: Female

DRUGS (6)
  1. AREDIA [Suspect]
     Route: 065
  2. ZOMETA [Suspect]
     Indication: METASTASES TO BONE
     Dosage: 4 MG, QMO
     Route: 042
     Dates: end: 2009
  3. ZOMETA [Suspect]
     Indication: BREAST CANCER METASTATIC
  4. XELODA [Concomitant]
  5. ABRAXANE//PACLITAXEL [Concomitant]
  6. AVASTIN [Concomitant]

REACTIONS (125)
  - Osteonecrosis of jaw [Unknown]
  - Anxiety [Unknown]
  - Injury [Unknown]
  - Anhedonia [Unknown]
  - Disability [Unknown]
  - Pain [Unknown]
  - Arteriosclerosis [Unknown]
  - Spinal osteoarthritis [Unknown]
  - Metastases to liver [Unknown]
  - Pleural effusion [Unknown]
  - Pneumothorax [Unknown]
  - Pulmonary hilum mass [Unknown]
  - Breast cancer [Unknown]
  - Malignant neoplasm progression [Unknown]
  - Lung cancer metastatic [Unknown]
  - Tachycardia [Unknown]
  - Spinal fracture [Unknown]
  - Hyperlipidaemia [Unknown]
  - Deep vein thrombosis [Unknown]
  - Anaemia [Unknown]
  - Cardiomyopathy [Unknown]
  - Tooth abscess [Unknown]
  - Fall [Unknown]
  - Dyspnoea [Not Recovered/Not Resolved]
  - Chest pain [Unknown]
  - Metastases to bone [Unknown]
  - Atelectasis [Unknown]
  - Interstitial lung disease [Unknown]
  - Cardiomegaly [Unknown]
  - Pulmonary embolism [Unknown]
  - Spinal compression fracture [Unknown]
  - Pericardial effusion [Unknown]
  - Aortic valve incompetence [Unknown]
  - Tricuspid valve incompetence [Unknown]
  - Pulmonary hypertension [Unknown]
  - Hypertension [Unknown]
  - Hyponatraemia [Unknown]
  - Hypercholesterolaemia [Unknown]
  - Dyslipidaemia [Unknown]
  - Blindness [Unknown]
  - Tooth infection [Unknown]
  - Gingival inflammation [Unknown]
  - Osteomyelitis [Unknown]
  - Mucosal ulceration [Unknown]
  - Excessive granulation tissue [Unknown]
  - Mucosal inflammation [Unknown]
  - Hiatus hernia [Unknown]
  - Pain in jaw [Unknown]
  - Bone swelling [Unknown]
  - Bone fragmentation [Unknown]
  - Bone loss [Unknown]
  - Metastases to lymph nodes [Unknown]
  - Cardiac failure congestive [Unknown]
  - Respiratory distress [Unknown]
  - Pulmonary congestion [Unknown]
  - Pyuria [Unknown]
  - Urinary tract infection [Unknown]
  - Retinal detachment [Unknown]
  - Venous thrombosis [Unknown]
  - Embolism venous [Unknown]
  - Osteosclerosis [Unknown]
  - Pulmonary oedema [Unknown]
  - Carpal tunnel syndrome [Unknown]
  - Cervicitis cystic [Unknown]
  - Uterine leiomyoma [Unknown]
  - Dysfunctional uterine bleeding [Unknown]
  - Lymphadenopathy mediastinal [Unknown]
  - Lung infiltration [Unknown]
  - Lung consolidation [Unknown]
  - Ventricular dysfunction [Unknown]
  - Alpha haemolytic streptococcal infection [Unknown]
  - Phlebitis [Unknown]
  - Thrombophlebitis [Unknown]
  - Bone lesion [Unknown]
  - Hepatic lesion [Unknown]
  - Cataract [Unknown]
  - Bacterial infection [Unknown]
  - Gastrooesophageal reflux disease [Unknown]
  - Pleural calcification [Unknown]
  - Confusional state [Unknown]
  - Hypercalcaemia [Unknown]
  - Bone pain [Unknown]
  - Bradycardia [Unknown]
  - Metastases to pleura [Unknown]
  - Metastases to meninges [Unknown]
  - Fracture displacement [Unknown]
  - Decubitus ulcer [Unknown]
  - Respiratory failure [Unknown]
  - Hypoxia [Unknown]
  - Thyroid disorder [Unknown]
  - Cholelithiasis [Unknown]
  - Kyphosis [Unknown]
  - Oedema peripheral [Unknown]
  - Neuropathy peripheral [Unknown]
  - Alopecia [Unknown]
  - Visual impairment [Unknown]
  - Paraesthesia [Unknown]
  - Cough [Unknown]
  - Stomatitis [Unknown]
  - Portal hypertension [Unknown]
  - Diverticulum intestinal [Unknown]
  - Fatigue [Unknown]
  - Sinusitis [Unknown]
  - Pneumonia [Unknown]
  - Spinal deformity [Unknown]
  - Pericardial calcification [Unknown]
  - Foot fracture [Unknown]
  - Rib fracture [Recovered/Resolved]
  - Spinal column stenosis [Unknown]
  - Joint injury [Unknown]
  - Pulmonary fibrosis [Unknown]
  - Aortic disorder [Unknown]
  - Pleural cyst [Unknown]
  - Pulmonary mass [Unknown]
  - Malignant pleural effusion [Unknown]
  - Mitral valve incompetence [Unknown]
  - Spondylolisthesis [Unknown]
  - Scoliosis [Unknown]
  - Oedema mouth [Unknown]
  - Exposed bone in jaw [Unknown]
  - Hypotension [Unknown]
  - Orthopnoea [Unknown]
  - Emphysema [Unknown]
  - Ventricular hypokinesia [Unknown]
  - Pulmonary valve incompetence [Unknown]
